FAERS Safety Report 6576480-2 (Version None)
Quarter: 2010Q1

REPORT INFORMATION
  Report Type: 
  Country: None (occurrence: None)
  Receive Date: 20100210
  Receipt Date: 20100111
  Transmission Date: 20100710
  Serious: Yes (Other)
  Sender: FDA-Public Use
  Company Number: GB-SANOFI-AVENTIS-200913850GDDC

PATIENT
  Age: 51 Year
  Sex: Female
  Weight: 61 kg

DRUGS (16)
  1. AFLIBERCEPT [Suspect]
     Indication: NON-SMALL CELL LUNG CANCER
     Dosage: DOSE UNIT: 6 MG/KG
     Route: 042
  2. DOCETAXEL [Suspect]
     Indication: NON-SMALL CELL LUNG CANCER
     Dosage: DOSE UNIT: 75 MG/M**2
     Route: 042
     Dates: start: 20090108, end: 20090108
  3. LANSOPRAZOLE [Concomitant]
     Dates: start: 20060715
  4. PROZAC [Concomitant]
     Dates: start: 20060715
  5. MELOXICAM [Concomitant]
     Dates: start: 20060715
  6. CO-CODAMOL [Concomitant]
     Dates: start: 19990715
  7. CORTICOSTEROIDS [Concomitant]
  8. AMITRIPTYLINE HCL [Concomitant]
     Dates: start: 19960715
  9. TRAMADOL [Concomitant]
     Dates: start: 20081006
  10. TRAMADOL [Concomitant]
     Dates: start: 20081231, end: 20090106
  11. TRIMETHOPRIM [Concomitant]
     Dates: start: 20081216, end: 20081221
  12. AMOXICILLIN [Concomitant]
     Dates: start: 20081222, end: 20081229
  13. FLUCONAZOLE [Concomitant]
     Dates: start: 20090106
  14. AMOXICILLIN SODIUM/CLAVULANATE POTASSIUM [Concomitant]
     Dates: start: 20090310, end: 20090310
  15. AMLODIPINE [Concomitant]
     Dates: start: 20090310
  16. HYPROMELLOSE [Concomitant]
     Dates: start: 20090310

REACTIONS (1)
  - OSTEONECROSIS [None]
